FAERS Safety Report 17774882 (Version 1)
Quarter: 2020Q2

REPORT INFORMATION
  Report Type: Spontaneous
  Country: US (occurrence: US)
  Receive Date: 20200512
  Receipt Date: 20200512
  Transmission Date: 20200714
  Serious: No
  Sender: FDA-Public Use
  Company Number: None

PATIENT
  Age: 78 Year
  Sex: Male
  Weight: 83.25 kg

DRUGS (4)
  1. OLMESARTAN MEDOXOMIL. [Concomitant]
     Active Substance: OLMESARTAN MEDOXOMIL
  2. LIVALO [Concomitant]
     Active Substance: PITAVASTATIN CALCIUM
  3. COLCRYS [Concomitant]
     Active Substance: COLCHICINE
  4. ARMODAFINIL MFG BY SANDOZ [Suspect]
     Active Substance: ARMODAFINIL
     Indication: DEPRESSED LEVEL OF CONSCIOUSNESS
     Dosage: ?          QUANTITY:20 TABLET(S);?
     Route: 048

REACTIONS (4)
  - Skin disorder [None]
  - Genital rash [None]
  - Product substitution issue [None]
  - Blister [None]

NARRATIVE: CASE EVENT DATE: 20200429
